FAERS Safety Report 23471394 (Version 3)
Quarter: 2024Q3

REPORT INFORMATION
  Report Type: Spontaneous
  Country: US (occurrence: US)
  Receive Date: 20240202
  Receipt Date: 20240920
  Transmission Date: 20241017
  Serious: Yes (Other)
  Sender: SANOFI AVENTIS
  Company Number: US-SA-SAC20240125000662

PATIENT
  Age: 60 Year
  Sex: Female

DRUGS (1)
  1. REZUROCK [Suspect]
     Active Substance: BELUMOSUDIL
     Indication: Acute myeloid leukaemia
     Dosage: 200 MG, QD
     Route: 048
     Dates: start: 20230711

REACTIONS (7)
  - Loss of consciousness [Unknown]
  - COVID-19 [Unknown]
  - Red blood cell sedimentation rate increased [Unknown]
  - Nervousness [Unknown]
  - Visual impairment [Unknown]
  - Hypotension [Unknown]
  - Product use in unapproved indication [Unknown]

NARRATIVE: CASE EVENT DATE: 20230101
